FAERS Safety Report 10333421 (Version 1)
Quarter: 2014Q3

REPORT INFORMATION
  Report Type: Spontaneous
  Country: US (occurrence: US)
  Receive Date: 20140722
  Receipt Date: 20140722
  Transmission Date: 20150326
  Serious: No
  Sender: FDA-Public Use
  Company Number: US-SA-2013SA129859

PATIENT
  Age: 46 Year
  Sex: Male

DRUGS (1)
  1. AMBIEN [Suspect]
     Active Substance: ZOLPIDEM TARTRATE
     Indication: SLEEP DISORDER THERAPY
     Dosage: DOSE: 3 TO 4 AS NEEDED
     Route: 065

REACTIONS (2)
  - Extra dose administered [Unknown]
  - Somnambulism [Recovered/Resolved]
